FAERS Safety Report 7981870-7 (Version None)
Quarter: 2011Q4

REPORT INFORMATION
  Report Type: 
  Country: None (occurrence: None)
  Receive Date: 20111215
  Receipt Date: 20111208
  Transmission Date: 20120403
  Serious: Yes (Other)
  Sender: FDA-Public Use
  Company Number: US-GENZYME-MOZO-1000596

PATIENT
  Sex: Male
  Weight: 69.7 kg

DRUGS (7)
  1. CYCLOPHOSPHAMIDE [Concomitant]
     Indication: MULTIPLE MYELOMA
  2. MOZOBIL [Suspect]
     Indication: HAEMATOPOIETIC STEM CELL MOBILISATION
     Dosage: 240 MCG/KG, UNK
     Route: 042
     Dates: start: 20110808, end: 20110808
  3. NEUPOGEN [Concomitant]
     Indication: MULTIPLE MYELOMA
  4. MOZOBIL [Suspect]
     Indication: MULTIPLE MYELOMA
  5. CYCLOPHOSPHAMIDE [Concomitant]
     Indication: HAEMATOPOIETIC STEM CELL MOBILISATION
     Dosage: 2700 MG, UNK
     Route: 042
     Dates: start: 20110729, end: 20110729
  6. MELPHALAN HYDROCHLORIDE [Concomitant]
     Indication: CHEMOTHERAPY
     Dosage: 100 MG/M2, UNK
     Dates: start: 20110827, end: 20110828
  7. NEUPOGEN [Concomitant]
     Indication: HAEMATOPOIETIC STEM CELL MOBILISATION
     Dosage: UNK
     Route: 058
     Dates: start: 20110101, end: 20110101

REACTIONS (5)
  - SYNCOPE [None]
  - INAPPROPRIATE ANTIDIURETIC HORMONE SECRETION [None]
  - VOMITING [None]
  - HYPONATRAEMIA [None]
  - NAUSEA [None]
